FAERS Safety Report 8697570 (Version 2)
Quarter: 2014Q2

REPORT INFORMATION
  Report Type: Report from Study
  Country: GB (occurrence: GB)
  Receive Date: 20120801
  Receipt Date: 20140603
  Transmission Date: 20141212
  Serious: Yes (Hospitalization)
  Sender: FDA-Public Use
  Company Number: PHHO2012GB011191

PATIENT
  Age: 72 Year
  Sex: Male
  Weight: 76.9 kg

DRUGS (9)
  1. GABAPENTIN [Suspect]
     Indication: PAIN
     Dosage: 300 MG, BID
     Route: 048
     Dates: start: 20120529, end: 20120723
  2. BHQ880 [Suspect]
     Indication: PLASMA CELL MYELOMA
     Dosage: 780 MG, UNK
     Route: 042
     Dates: start: 20120214
  3. BORTEZOMIB COMPARATOR COMP-BOR+ [Suspect]
     Indication: PLASMA CELL MYELOMA
     Dosage: 2.6 MG, UNK
     Route: 042
     Dates: start: 20120214
  4. DEXAMETHASONE COMPARATOR COMP-DEX+ [Suspect]
     Indication: PLASMA CELL MYELOMA
     Dosage: 20 MG, UNK
     Route: 048
     Dates: start: 20120214
  5. NO TREATMENT RECEIVED [Suspect]
     Indication: PLASMA CELL MYELOMA
  6. GLICLAZIDE [Concomitant]
     Indication: TYPE 2 DIABETES MELLITUS
     Dosage: 5 MG, QD
     Route: 048
     Dates: start: 20111017
  7. SODIUM BICARBONATE [Concomitant]
     Dosage: 1.5 G, QD
     Route: 048
     Dates: start: 20120214
  8. DARBEPOETIN ALFA [Concomitant]
     Indication: RENAL DISORDER
     Dosage: 40 UG, BIW
     Route: 042
     Dates: start: 20120210
  9. CITALOPRAM [Concomitant]
     Indication: ANTIDEPRESSANT THERAPY
     Dosage: 10 MG, QD
     Route: 048
     Dates: start: 20120310

REACTIONS (3)
  - Confusional state [Recovering/Resolving]
  - Urinary tract infection [Recovering/Resolving]
  - Disorientation [None]
